FAERS Safety Report 13825151 (Version 2)
Quarter: 2017Q3

REPORT INFORMATION
  Report Type: Spontaneous
  Country: JP (occurrence: JP)
  Receive Date: 20170802
  Receipt Date: 20170810
  Transmission Date: 20171127
  Serious: Yes (Hospitalization)
  Sender: FDA-Public Use
  Company Number: JP-JNJFOC-20170710006

PATIENT
  Age: 7 Decade
  Sex: Male

DRUGS (1)
  1. NEOPERIDOL [Suspect]
     Active Substance: HALOPERIDOL
     Indication: SCHIZOPHRENIA
     Route: 030
     Dates: end: 2017

REACTIONS (3)
  - Akathisia [Recovered/Resolved]
  - Tremor [Recovered/Resolved]
  - Irritability [Recovered/Resolved]
